FAERS Safety Report 9523892 (Version 1)
Quarter: 2013Q1

REPORT INFORMATION
  Report Type: Spontaneous
  Country: US (occurrence: None)
  Receive Date: 20130305
  Receipt Date: 20130305
  Transmission Date: 20140127
  Serious: Yes (Other)
  Sender: FDA-Public Use
  Company Number: 163-21880-12032062

PATIENT
  Age: 59 Year
  Sex: Male

DRUGS (11)
  1. REVLIMID (LENALIDOMIDE) (15 MILLIGRAM, CAPSULES) [Suspect]
     Indication: PLASMA CELL MYELOMA
     Dosage: 1 IN 2 D
     Route: 048
     Dates: start: 201201, end: 201202
  2. FAMOTIDINE (FAMOTIDINE) [Concomitant]
  3. HYDROCODONE/APAP (VICODIN) [Concomitant]
  4. ELIPHOS (CALCIUM ACETATE) [Concomitant]
  5. GLIPIZIDE (GLIPIZIDE) [Concomitant]
  6. NPH INSULIN (INSULIN INJECTION, ISOPHANE) [Concomitant]
  7. INSULIN (INSULIN) [Concomitant]
  8. AMITRIPTYLINE (AMITRIPTYLINE) [Concomitant]
  9. DOCUSATE (DOCUSATE) [Concomitant]
  10. VELCADE (BORTEZOMIB) [Concomitant]
  11. DEXAMETHASONE (DEXAMETHASONE) [Concomitant]

REACTIONS (4)
  - Hypoglycaemia [None]
  - Thrombocytopenia [None]
  - Renal failure acute [None]
  - Haemoglobin decreased [None]
